FAERS Safety Report 6443314-6 (Version None)
Quarter: 2009Q4

REPORT INFORMATION
  Report Type: 
  Country: None (occurrence: None)
  Receive Date: 20091112
  Receipt Date: 20091102
  Transmission Date: 20100525
  Serious: Yes (Hospitalization)
  Sender: FDA-Public Use
  Company Number: ADR47222009

PATIENT
  Age: 54 Year
  Sex: Male

DRUGS (2)
  1. SIMVASTATIN [Suspect]
     Indication: BLOOD CHOLESTEROL INCREASED
     Dosage: 20MG, ORAL
     Route: 048
  2. LEVOTHYROXINE SODIUM [Concomitant]

REACTIONS (3)
  - ABASIA [None]
  - COMPARTMENT SYNDROME [None]
  - MUSCLE NECROSIS [None]
